FAERS Safety Report 24874704 (Version 1)
Quarter: 2025Q1

REPORT INFORMATION
  Report Type: Spontaneous
  Country: JP (occurrence: JP)
  Receive Date: 20250122
  Receipt Date: 20250122
  Transmission Date: 20250409
  Serious: Yes (Hospitalization, Other)
  Sender: PFIZER
  Company Number: JP-PFIZER INC-PV202500007722

PATIENT
  Age: 80 Year
  Sex: Male

DRUGS (2)
  1. VYNDAQEL [Suspect]
     Active Substance: TAFAMIDIS MEGLUMINE
     Indication: Hereditary neuropathic amyloidosis
     Dates: start: 2018
  2. ONPATTRO [Concomitant]
     Active Substance: PATISIRAN SODIUM
     Dates: start: 2020

REACTIONS (5)
  - Constipation [Unknown]
  - Dysstasia [Unknown]
  - Arrhythmia [Unknown]
  - Sinus bradycardia [Unknown]
  - Supraventricular extrasystoles [Unknown]

NARRATIVE: CASE EVENT DATE: 20190101
